FAERS Safety Report 4801039-4 (Version None)
Quarter: 2005Q4

REPORT INFORMATION
  Report Type: 
  Country: None (occurrence: None)
  Receive Date: 20051012
  Receipt Date: 20051012
  Transmission Date: 20060501
  Serious: Yes (Hospitalization)
  Sender: FDA-Public Use
  Company Number: None

PATIENT
  Sex: Female
  Weight: 56.6996 kg

DRUGS (3)
  1. MOTRIN [Suspect]
     Indication: HEADACHE
     Dosage: PO [PRIOR TO ADMISSION]
     Route: 048
  2. AXALT [Concomitant]
  3. FIORICET [Concomitant]

REACTIONS (3)
  - HAEMATEMESIS [None]
  - NAUSEA [None]
  - VOMITING [None]
